FAERS Safety Report 19808553 (Version 2)
Quarter: 2021Q3

REPORT INFORMATION
  Report Type: Report from Study
  Country: BE (occurrence: BE)
  Receive Date: 20210908
  Receipt Date: 20210924
  Transmission Date: 20211014
  Serious: Yes (Hospitalization)
  Sender: FDA-Public Use
  Company Number: BE-PFIZER INC-202101161407

PATIENT
  Age: 63 Year
  Sex: Male
  Weight: 79 kg

DRUGS (12)
  1. DEXAMETHASONE. [Suspect]
     Active Substance: DEXAMETHASONE
     Indication: DIFFUSE LARGE B-CELL LYMPHOMA STAGE III
     Dosage: 40 MG, 1X/DAY, SOLUTION FOR INJECTION/INFUSION
     Route: 042
     Dates: start: 20210804, end: 20210807
  2. SOLU?MEDROL [Concomitant]
     Active Substance: METHYLPREDNISOLONE SODIUM SUCCINATE
     Dosage: 80 MG
     Route: 042
     Dates: start: 20210811, end: 20210811
  3. PARACETAMOL [Concomitant]
     Active Substance: ACETAMINOPHEN
     Dosage: 1 G
     Route: 048
     Dates: start: 20210811, end: 20210811
  4. RITUXIMAB. [Suspect]
     Active Substance: RITUXIMAB
     Indication: DIFFUSE LARGE B-CELL LYMPHOMA STAGE III
     Dosage: 375 MG/M2, SINGLE, CONCENTRATE FOR SOLUTION FOR INJECTION
     Route: 042
     Dates: start: 20210804, end: 20210804
  5. CYTARABINE. [Suspect]
     Active Substance: CYTARABINE
     Dosage: 2000 MG/M2, SINGLE
     Route: 042
     Dates: start: 20210805, end: 20210805
  6. EPCORITAMAB. [Concomitant]
     Active Substance: EPCORITAMAB
     Dosage: INTERMEDIATE DOSE: 0.8 MG, SINGLE, DUOBODY?CD3XCD20, CONCENTRATE FOR SOLUTION FOR INJECTION
     Route: 058
     Dates: start: 20210811, end: 20210811
  7. OXALIPLATIN. [Concomitant]
     Active Substance: OXALIPLATIN
     Indication: DIFFUSE LARGE B-CELL LYMPHOMA STAGE III
     Dosage: CONCENTRATE FOR SOLUTION FOR INFUSION
     Route: 042
  8. MEDROL [Concomitant]
     Active Substance: METHYLPREDNISOLONE
     Dosage: 80 MG
     Route: 048
     Dates: start: 20210812, end: 202108
  9. CYTARABINE. [Suspect]
     Active Substance: CYTARABINE
     Indication: DIFFUSE LARGE B-CELL LYMPHOMA STAGE III
     Dosage: 2000 MG/M2, EVERY 12 HOURS
     Route: 042
     Dates: start: 20210804, end: 20210804
  10. EPCORITAMAB. [Concomitant]
     Active Substance: EPCORITAMAB
     Dosage: PRIMING DOSE 0.16 MG, SINGLE, DUOBODY?CD3XCD20, CONCENTRATE FOR SOLUTION FOR INJECTION
     Route: 058
     Dates: start: 20210804, end: 20210804
  11. CARBOPLATIN. [Suspect]
     Active Substance: CARBOPLATIN
     Indication: DIFFUSE LARGE B-CELL LYMPHOMA STAGE III
     Route: 042
  12. TAVEGYL [Concomitant]
     Active Substance: CLEMASTINE FUMARATE
     Dosage: 2 MG
     Route: 042
     Dates: start: 20210811, end: 20210811

REACTIONS (1)
  - Cardiac failure [Not Recovered/Not Resolved]

NARRATIVE: CASE EVENT DATE: 20210826
